FAERS Safety Report 4893665-1 (Version None)
Quarter: 2005Q4

REPORT INFORMATION
  Report Type: 
  Country: None (occurrence: None)
  Receive Date: 20051223
  Receipt Date: 20050920
  Transmission Date: 20060501
  Serious: No
  Sender: FDA-Public Use
  Company Number: 2005PV002334

PATIENT
  Age: 73 Year
  Sex: Male
  Weight: 88.905 kg

DRUGS (5)
  1. SYMLIN [Suspect]
     Indication: DIABETES MELLITUS NON-INSULIN-DEPENDENT
     Dosage: 120 MCG;TID;SC
     Route: 058
     Dates: start: 20050823
  2. BYETTA [Suspect]
     Indication: DIABETES MELLITUS NON-INSULIN-DEPENDENT
     Dosage: 5 MCG;SC
     Route: 058
     Dates: start: 20050801, end: 20050801
  3. LANTUS [Concomitant]
  4. AVANDIA [Concomitant]
  5. STARLIX [Concomitant]

REACTIONS (6)
  - BLOOD GLUCOSE FLUCTUATION [None]
  - FATIGUE [None]
  - FLATULENCE [None]
  - INJECTION SITE HAEMORRHAGE [None]
  - INJECTION SITE PAIN [None]
  - NAUSEA [None]
